FAERS Safety Report 7444922-6 (Version None)
Quarter: 2011Q2

REPORT INFORMATION
  Report Type: 
  Country: None (occurrence: None)
  Receive Date: 20110429
  Receipt Date: 20110418
  Transmission Date: 20111010
  Serious: Yes (Other)
  Sender: FDA-Public Use
  Company Number: PHHY2010CA44535

PATIENT
  Sex: Male

DRUGS (1)
  1. ZOMETA [Suspect]
     Indication: METASTASES TO BONE
     Dosage: 4 MG EVERY 4 WEEKS
     Route: 042
     Dates: start: 20100430

REACTIONS (11)
  - BLOOD POTASSIUM DECREASED [None]
  - BONE PAIN [None]
  - ASTHENIA [None]
  - THROMBOSIS [None]
  - MUSCLE SPASMS [None]
  - BLOOD PRESSURE INCREASED [None]
  - PULMONARY EMBOLISM [None]
  - OEDEMA PERIPHERAL [None]
  - FULL BLOOD COUNT ABNORMAL [None]
  - DYSPNOEA [None]
  - ARTHRITIS [None]
